FAERS Safety Report 10221722 (Version 1)
Quarter: 2014Q2

REPORT INFORMATION
  Report Type: Spontaneous
  Country: IT (occurrence: IT)
  Receive Date: 20140606
  Receipt Date: 20140606
  Transmission Date: 20141212
  Serious: Yes (Hospitalization)
  Sender: FDA-Public Use
  Company Number: IT-JNJFOC-20140517419

PATIENT
  Age: 59 Year
  Sex: Female

DRUGS (1)
  1. DUROGESIC [Suspect]
     Indication: BACK PAIN
     Route: 062
     Dates: start: 20140324, end: 20140406

REACTIONS (3)
  - Abdominal pain [Recovered/Resolved]
  - Back pain [Recovered/Resolved]
  - Inappropriate schedule of drug administration [Unknown]
